FAERS Safety Report 5917100-7 (Version None)
Quarter: 2008Q4

REPORT INFORMATION
  Report Type: 
  Country: None (occurrence: None)
  Receive Date: 20081009
  Receipt Date: 20080926
  Transmission Date: 20090506
  Serious: Yes (Hospitalization, Disabling)
  Sender: FDA-Public Use
  Company Number: 2008S1009593

PATIENT
  Age: 79 Year
  Sex: Female

DRUGS (6)
  1. PHOSPHOSODA FLAVOR NOT SPECIFIED (SODIUM PHOSPHATE DIBASIC/SODIUM PHOS [Suspect]
     Indication: COLONOSCOPY
     Dosage: 45 ML; BID PO, 45 ML; 169; PO; BID
     Route: 048
     Dates: start: 20051101, end: 20051101
  2. ENALAPRIL MALEATE [Concomitant]
  3. HYDROCHLOROTHIAZIDE [Concomitant]
  4. AMLODIPINE (AMLODIPINE) [Concomitant]
  5. ATENOLOL [Concomitant]
  6. ASPIRIN (BEING QUERIED) [Concomitant]

REACTIONS (4)
  - DISEASE COMPLICATION [None]
  - NEPHROCALCINOSIS [None]
  - NEPHROPATHY [None]
  - RENAL FAILURE ACUTE [None]
